FAERS Safety Report 18995136 (Version 4)
Quarter: 2022Q4

REPORT INFORMATION
  Report Type: Report from Study
  Country: FR (occurrence: FR)
  Receive Date: 20210311
  Receipt Date: 20221110
  Transmission Date: 20230112
  Serious: Yes (Life-Threatening, Hospitalization, Disabling, Other)
  Sender: FDA-Public Use
  Company Number: FR-AMGEN-FRACT2021035474

PATIENT
  Age: 65 Year
  Sex: Female
  Weight: 120 kg

DRUGS (23)
  1. PANITUMUMAB [Suspect]
     Active Substance: PANITUMUMAB
     Indication: Colorectal cancer
     Dosage: 1050 MILLIGRAM
     Route: 040
     Dates: start: 20201102
  2. PANITUMUMAB [Suspect]
     Active Substance: PANITUMUMAB
     Indication: Metastases to lung
     Dosage: 580 MILLIGRAM
     Route: 040
     Dates: end: 20210208
  3. PANITUMUMAB [Suspect]
     Active Substance: PANITUMUMAB
     Indication: Metastases to liver
     Dosage: 240 MILLIGRAM
     Route: 040
  4. PANITUMUMAB [Suspect]
     Active Substance: PANITUMUMAB
     Indication: Rectosigmoid cancer
  5. FLUOROURACIL [Suspect]
     Active Substance: FLUOROURACIL
     Indication: Colorectal cancer
     Dosage: UNK
     Route: 042
     Dates: start: 20201102
  6. FLUOROURACIL [Suspect]
     Active Substance: FLUOROURACIL
     Indication: Metastases to lung
     Dosage: 4850 MILLIGRAM
     Route: 042
     Dates: end: 20210208
  7. FLUOROURACIL [Suspect]
     Active Substance: FLUOROURACIL
     Indication: Metastases to liver
  8. FLUOROURACIL [Suspect]
     Active Substance: FLUOROURACIL
     Indication: Rectosigmoid cancer
  9. IRINOTECAN [Suspect]
     Active Substance: IRINOTECAN
     Indication: Colorectal cancer
     Dosage: CUMULATIVE DOSE SINCE FIRST ADMINISTRATION: 1050 MG
     Route: 042
     Dates: start: 20201102
  10. IRINOTECAN [Suspect]
     Active Substance: IRINOTECAN
     Indication: Metastases to lung
     Dosage: 240 MILLIGRAM (DOSE PRIOR TO SAE)
     Route: 042
     Dates: start: 20201228
  11. IRINOTECAN [Suspect]
     Active Substance: IRINOTECAN
     Indication: Metastases to liver
  12. IRINOTECAN [Suspect]
     Active Substance: IRINOTECAN
     Indication: Rectosigmoid cancer
  13. LEVOLEUCOVORIN [Suspect]
     Active Substance: LEVOLEUCOVORIN
     Indication: Colorectal cancer
     Dosage: UNK
     Route: 042
     Dates: start: 20201102
  14. LEVOLEUCOVORIN [Suspect]
     Active Substance: LEVOLEUCOVORIN
     Indication: Metastases to lung
     Dosage: 400 MILLIGRAM
     Route: 042
     Dates: end: 20210208
  15. LEVOLEUCOVORIN [Suspect]
     Active Substance: LEVOLEUCOVORIN
     Indication: Metastases to liver
  16. LEVOLEUCOVORIN [Suspect]
     Active Substance: LEVOLEUCOVORIN
     Indication: Rectosigmoid cancer
  17. OXALIPLATIN [Suspect]
     Active Substance: OXALIPLATIN
     Indication: Colorectal cancer
     Dosage: UNK
     Route: 042
     Dates: start: 20201102
  18. OXALIPLATIN [Suspect]
     Active Substance: OXALIPLATIN
     Indication: Metastases to liver
     Dosage: 115 MILLIGRAM
     Route: 042
     Dates: end: 20210208
  19. OXALIPLATIN [Suspect]
     Active Substance: OXALIPLATIN
     Indication: Metastases to liver
  20. OXALIPLATIN [Suspect]
     Active Substance: OXALIPLATIN
     Indication: Rectosigmoid cancer
  21. ONDANSETRON [Concomitant]
     Active Substance: ONDANSETRON
     Indication: Prophylactic chemotherapy
     Dosage: 16 MILLIGRAM
     Route: 048
     Dates: start: 20201122
  22. PREDNISOLONE [Concomitant]
     Active Substance: PREDNISOLONE
     Indication: Prophylactic chemotherapy
     Dosage: 60 MILLIGRAM
     Route: 048
     Dates: start: 20201102
  23. APREPITANT [Concomitant]
     Active Substance: APREPITANT
     Indication: Prophylactic chemotherapy
     Dosage: 80 MILLIGRAM
     Route: 048
     Dates: start: 20201020

REACTIONS (2)
  - Peritonitis [Recovered/Resolved]
  - Large intestine perforation [Recovered/Resolved]

NARRATIVE: CASE EVENT DATE: 20210219
